FAERS Safety Report 18738465 (Version 1)
Quarter: 2021Q1

REPORT INFORMATION
  Report Type: Report from Study
  Country: None (occurrence: US)
  Receive Date: 20210114
  Receipt Date: 20210114
  Transmission Date: 20210419
  Serious: Yes (Life-Threatening, Hospitalization, Other)
  Sender: FDA-Public Use
  Company Number: US-ABBVIE-20K-163-3485132-00

PATIENT
  Age: 61 Year
  Sex: Female
  Weight: 67.19 kg

DRUGS (6)
  1. SERTRALINE [Concomitant]
     Active Substance: SERTRALINE HYDROCHLORIDE
     Indication: PRODUCT USED FOR UNKNOWN INDICATION
  2. VITAMIN B12 [Concomitant]
     Active Substance: CYANOCOBALAMIN
     Indication: PRODUCT USED FOR UNKNOWN INDICATION
  3. PANTOPRAZOLE [Concomitant]
     Active Substance: PANTOPRAZOLE
     Indication: PRODUCT USED FOR UNKNOWN INDICATION
  4. CALCIUM [Concomitant]
     Active Substance: CALCIUM
     Indication: PRODUCT USED FOR UNKNOWN INDICATION
  5. VITAMIN D [Concomitant]
     Active Substance: VITAMIN D NOS
     Indication: PRODUCT USED FOR UNKNOWN INDICATION
  6. HUMIRA [Suspect]
     Active Substance: ADALIMUMAB
     Indication: CROHN^S DISEASE
     Dosage: CITRATE FREE
     Route: 058
     Dates: start: 20200521, end: 20200618

REACTIONS (17)
  - Feeling abnormal [Unknown]
  - Injection site reaction [Unknown]
  - Stress cardiomyopathy [Unknown]
  - Myocardial infarction [Recovering/Resolving]
  - Musculoskeletal stiffness [Unknown]
  - Urticaria [Unknown]
  - Injection site rash [Unknown]
  - Neck pain [Unknown]
  - Amnesia [Unknown]
  - Pain in extremity [Unknown]
  - Infection [Unknown]
  - Localised infection [Recovering/Resolving]
  - Toothache [Unknown]
  - Pyrexia [Unknown]
  - Injection site erythema [Unknown]
  - Injection site papule [Unknown]
  - Back pain [Unknown]

NARRATIVE: CASE EVENT DATE: 2020
